FAERS Safety Report 6577705-X (Version None)
Quarter: 2010Q1

REPORT INFORMATION
  Report Type: 
  Country: None (occurrence: None)
  Receive Date: 20100211
  Receipt Date: 20100211
  Transmission Date: 20100710
  Serious: Yes (Hospitalization)
  Sender: FDA-Public Use
  Company Number: PHHO2004IT05082

PATIENT
  Sex: Male
  Weight: 93 kg

DRUGS (4)
  1. STARLIX [Suspect]
     Indication: GLUCOSE TOLERANCE IMPAIRED
     Dosage: LEVEL 1
     Route: 048
     Dates: start: 20030122
  2. STARLIX [Suspect]
     Dosage: LEVEL 2
     Route: 048
  3. PLACEBO [Suspect]
     Dosage: LEVEL 1
     Route: 048
     Dates: start: 20030122
  4. PLACEBO [Suspect]
     Dosage: LEVEL 2
     Route: 048

REACTIONS (1)
  - SYNCOPE [None]
